FAERS Safety Report 19059190 (Version 1)
Quarter: 2021Q1

REPORT INFORMATION
  Report Type: Spontaneous
  Country: JP (occurrence: JP)
  Receive Date: 20210325
  Receipt Date: 20210325
  Transmission Date: 20210420
  Serious: Yes (Other)
  Sender: FDA-Public Use
  Company Number: JP-PFIZER INC-2021150460

PATIENT
  Age: 53 Year
  Sex: Female
  Weight: 72 kg

DRUGS (9)
  1. CEFAZOLIN NA [Concomitant]
     Active Substance: CEFAZOLIN SODIUM
     Indication: PREOPERATIVE CARE
     Dosage: 2 G, 2X/DAY
     Route: 041
     Dates: start: 20210127, end: 20210127
  2. ANAPEINE [Concomitant]
     Active Substance: ROPIVACAINE HYDROCHLORIDE
     Indication: PERIPHERAL NERVE DESTRUCTION
     Dosage: 20 ML (15 MG)
     Route: 030
     Dates: start: 20210127, end: 20210127
  3. XYLOCAINE POLYAMP 1% [Concomitant]
     Indication: PERIPHERAL NERVE DESTRUCTION
     Dosage: 10 ML
     Route: 030
     Dates: start: 20210127, end: 20210127
  4. CEFAZOLIN NA [Concomitant]
     Active Substance: CEFAZOLIN SODIUM
     Dosage: 2 G, 2X/DAY
     Dates: start: 20210127, end: 20210127
  5. ACELIO [Concomitant]
     Active Substance: ACETAMINOPHEN
     Indication: ANALGESIC THERAPY
     Dosage: 1000 MG
     Route: 041
     Dates: start: 20210127, end: 20210127
  6. PRECEDEX [Suspect]
     Active Substance: DEXMEDETOMIDINE HYDROCHLORIDE
     Indication: SEDATIVE THERAPY
     Dosage: 6 MCG/KG/HOUR
     Route: 041
     Dates: start: 20210127, end: 20210127
  7. PRECEDEX [Suspect]
     Active Substance: DEXMEDETOMIDINE HYDROCHLORIDE
     Dosage: 0.4 MCG/KG/HOUR
     Route: 041
     Dates: start: 20210127, end: 20210127
  8. NORMAL SALINE [Concomitant]
     Active Substance: SODIUM CHLORIDE
     Dosage: UNK
     Route: 065
     Dates: start: 20210127, end: 20210127
  9. TRANEXAMIC ACID. [Concomitant]
     Active Substance: TRANEXAMIC ACID
     Indication: PREOPERATIVE CARE
     Dosage: 1 G
     Route: 041
     Dates: start: 20210127, end: 20210127

REACTIONS (3)
  - Drug hypersensitivity [Unknown]
  - Restless legs syndrome [Recovered/Resolved]
  - Pruritus [Unknown]

NARRATIVE: CASE EVENT DATE: 20210127
